FAERS Safety Report 9124254 (Version 2)
Quarter: 2013Q1

REPORT INFORMATION
  Report Type: Report from Study
  Country: CA (occurrence: CA)
  Receive Date: 20130227
  Receipt Date: 20130301
  Transmission Date: 20140127
  Serious: Yes (Other)
  Sender: FDA-Public Use
  Company Number: CA-ROCHE-1195018

PATIENT
  Sex: Female
  Weight: 64 kg

DRUGS (8)
  1. ACTEMRA [Suspect]
     Indication: RHEUMATOID ARTHRITIS
     Route: 042
     Dates: start: 20121122
  2. FOSAMAX [Concomitant]
  3. METHOTREXATE [Concomitant]
  4. PREDNISONE [Concomitant]
  5. CELEBREX [Concomitant]
  6. CARBOCAL [Concomitant]
  7. FOLIC ACID [Concomitant]
  8. VITAMIN C [Concomitant]

REACTIONS (1)
  - Nail injury [Not Recovered/Not Resolved]
